FAERS Safety Report 16163020 (Version 2)
Quarter: 2019Q3

REPORT INFORMATION
  Report Type: Spontaneous
  Country: US (occurrence: US)
  Receive Date: 20190405
  Receipt Date: 20190717
  Transmission Date: 20191004
  Serious: No
  Sender: FDA-Public Use
  Company Number: US-PFIZER INC-2019140776

PATIENT
  Age: 65 Year
  Sex: Female
  Weight: 111.11 kg

DRUGS (1)
  1. CLINDAMYCIN HCL [Suspect]
     Active Substance: CLINDAMYCIN HYDROCHLORIDE
     Dosage: UNK

REACTIONS (2)
  - Drug hypersensitivity [Unknown]
  - Diarrhoea [Unknown]
